FAERS Safety Report 4990605-1 (Version None)
Quarter: 2006Q2

REPORT INFORMATION
  Report Type: 
  Country: None (occurrence: None)
  Receive Date: 20060501
  Receipt Date: 20060501
  Transmission Date: 20061013
  Serious: Yes (Hospitalization)
  Sender: FDA-Public Use
  Company Number: None

PATIENT
  Sex: Female
  Weight: 76.4 kg

DRUGS (1)
  1. ZOLEDRONIC ACID 4MG/ 100ML NACL [Suspect]
     Indication: OSTEOPOROSIS
     Dosage: 4 MG/100 ML X 1DOSE IV
     Route: 042
     Dates: start: 20060413

REACTIONS (6)
  - ARTHRALGIA [None]
  - DIARRHOEA [None]
  - HEADACHE [None]
  - INFLUENZA LIKE ILLNESS [None]
  - INFUSION RELATED REACTION [None]
  - PERICARDITIS [None]
